FAERS Safety Report 6152902-6 (Version None)
Quarter: 2009Q2

REPORT INFORMATION
  Report Type: 
  Country: None (occurrence: None)
  Receive Date: 20090413
  Receipt Date: 20090331
  Transmission Date: 20091009
  Serious: Yes (Other)
  Sender: FDA-Public Use
  Company Number: US-PFIZER INC-2006086685

PATIENT
  Sex: Female

DRUGS (6)
  1. PROVERA [Suspect]
     Indication: HORMONE REPLACEMENT THERAPY
     Dosage: 2.5 MG, UNK
     Route: 048
     Dates: start: 19910101, end: 19940101
  2. PROVERA [Suspect]
     Indication: ENDOMETRIOSIS
  3. MEDROXYPROGESTERONE [Suspect]
     Indication: HORMONE REPLACEMENT THERAPY
     Route: 048
  4. PREMARIN [Suspect]
     Indication: MENOPAUSE
     Dosage: 1.25 AND 0.625MG
     Dates: start: 19920101, end: 20030101
  5. PREMARIN [Suspect]
     Indication: CARDIOVASCULAR EVENT PROPHYLAXIS
  6. PREMARIN [Suspect]
     Indication: OSTEOPOROSIS PROPHYLAXIS

REACTIONS (1)
  - BREAST CANCER FEMALE [None]
